FAERS Safety Report 6419585-9 (Version None)
Quarter: 2009Q4

REPORT INFORMATION
  Report Type: 
  Country: None (occurrence: None)
  Receive Date: 20091029
  Receipt Date: 20091016
  Transmission Date: 20100525
  Serious: Yes (Death, Other)
  Sender: FDA-Public Use
  Company Number: CA-BAXTER-2009BH014939

PATIENT
  Age: 59 Year
  Sex: Male
  Weight: 57 kg

DRUGS (13)
  1. GAMMAGARD LIQUID [Suspect]
     Indication: HYPOGAMMAGLOBULINAEMIA
     Route: 042
     Dates: start: 20090925, end: 20090925
  2. GAMMAGARD LIQUID [Suspect]
     Route: 042
     Dates: start: 20090721, end: 20090721
  3. GAMMAGARD LIQUID [Suspect]
     Route: 042
     Dates: start: 20090714, end: 20090714
  4. HEPARIN [Concomitant]
     Dates: start: 20090925, end: 20090925
  5. TYLENOL [Concomitant]
     Route: 048
     Dates: start: 20090925, end: 20090925
  6. DILAUDID [Concomitant]
     Route: 058
     Dates: start: 20090925, end: 20090925
  7. ALBUTEROL SULFATE AUTOHALER [Concomitant]
     Route: 055
     Dates: start: 20090925, end: 20090925
  8. FLOVENT [Concomitant]
     Route: 055
     Dates: start: 20090925, end: 20090925
  9. COLACE [Concomitant]
     Route: 048
     Dates: start: 20090925, end: 20090925
  10. SENOKOT /UNK/ [Concomitant]
     Route: 048
     Dates: start: 20090925, end: 20090925
  11. ALLOPURINOL [Concomitant]
     Route: 048
     Dates: start: 20090925, end: 20090925
  12. TIOTROPIUM [Concomitant]
     Route: 055
     Dates: start: 20090925, end: 20090925
  13. LASIX [Concomitant]
     Route: 048
     Dates: start: 20090925, end: 20090925

REACTIONS (14)
  - ANXIETY [None]
  - BLOOD PRESSURE FLUCTUATION [None]
  - BODY TEMPERATURE INCREASED [None]
  - CHEST PAIN [None]
  - CHILLS [None]
  - COLD SWEAT [None]
  - CYANOSIS [None]
  - DYSPNOEA [None]
  - HYPERHIDROSIS [None]
  - HYPOXIA [None]
  - OEDEMA PERIPHERAL [None]
  - RESPIRATORY FAILURE [None]
  - TACHYCARDIA [None]
  - TREMOR [None]
